FAERS Safety Report 5069508-2 (Version None)
Quarter: 2006Q3

REPORT INFORMATION
  Report Type: 
  Country: None (occurrence: None)
  Receive Date: 20060803
  Receipt Date: 20060710
  Transmission Date: 20061208
  Serious: Yes (Hospitalization)
  Sender: FDA-Public Use
  Company Number: IE-ROCHE-454955

PATIENT
  Age: 51 Year
  Sex: Female

DRUGS (2)
  1. XELODA [Suspect]
     Route: 065
  2. AVASTIN [Suspect]
     Route: 065

REACTIONS (4)
  - BLISTER [None]
  - CATHETER SITE DISCHARGE [None]
  - MOUTH ULCERATION [None]
  - THROMBOSIS [None]
